FAERS Safety Report 14253480 (Version 1)
Quarter: 2017Q4

REPORT INFORMATION
  Report Type: Spontaneous
  Country: GB (occurrence: GB)
  Receive Date: 20171206
  Receipt Date: 20171206
  Transmission Date: 20180321
  Serious: Yes (Life-Threatening, Hospitalization)
  Sender: FDA-Public Use
  Company Number: GB-ACCORD-061611

PATIENT
  Age: 52 Year
  Sex: Female
  Weight: 102 kg

DRUGS (5)
  1. CO-BENELDOPA [Interacting]
     Active Substance: BENSERAZIDE HYDROCHLORIDE\LEVODOPA
     Indication: PARKINSON^S DISEASE
  2. MADOPAR [Interacting]
     Active Substance: BENSERAZIDE HYDROCHLORIDE\LEVODOPA
     Indication: PARKINSON^S DISEASE
  3. HYOSCINE [Concomitant]
     Active Substance: SCOPOLAMINE
  4. CLOZAPINE. [Suspect]
     Active Substance: CLOZAPINE
     Indication: PERSONALITY DISORDER
     Route: 048
  5. CO-BENELDOPA [Interacting]
     Active Substance: BENSERAZIDE HYDROCHLORIDE\LEVODOPA
     Indication: PARKINSON^S DISEASE
     Route: 048

REACTIONS (4)
  - Intestinal obstruction [Unknown]
  - Faeces hard [Unknown]
  - Metabolic acidosis [Unknown]
  - Potentiating drug interaction [Unknown]

NARRATIVE: CASE EVENT DATE: 20171020
